FAERS Safety Report 4331864-8 (Version None)
Quarter: 2004Q2

REPORT INFORMATION
  Report Type: 
  Country: None (occurrence: None)
  Receive Date: 20040405
  Receipt Date: 20031230
  Transmission Date: 20050107
  Serious: No
  Sender: FDA-Public Use
  Company Number: US-GLAXOSMITHKLINE-A0490857A

PATIENT
  Age: 46 Year
  Sex: Female

DRUGS (2)
  1. FLOVENT [Suspect]
     Indication: ASTHMA
     Dosage: 1PUFF TWICE PER DAY
     Route: 055
     Dates: start: 20031201, end: 20031201
  2. ATIVAN [Concomitant]

REACTIONS (4)
  - DIZZINESS [None]
  - FEELING HOT [None]
  - PARAESTHESIA [None]
  - THROAT TIGHTNESS [None]
